FAERS Safety Report 6546822-2 (Version None)
Quarter: 2010Q1

REPORT INFORMATION
  Report Type: 
  Country: None (occurrence: None)
  Receive Date: 20100122
  Receipt Date: 20100112
  Transmission Date: 20100710
  Serious: Yes (Death, Life-Threatening, Hospitalization, Other)
  Sender: FDA-Public Use
  Company Number: DE-PFIZER INC-2009288951

PATIENT
  Age: 53 Year
  Sex: Female
  Weight: 56 kg

DRUGS (2)
  1. AROMASIN [Suspect]
     Indication: BREAST CANCER METASTATIC
     Dosage: 25 MG, 1X/DAY
     Route: 048
     Dates: start: 20081201, end: 20091001
  2. MITOXANTRONE HYDROCHLORIDE [Suspect]
     Indication: BREAST CANCER FEMALE
     Dosage: UNK
     Route: 042
     Dates: start: 19980801, end: 19980101

REACTIONS (5)
  - ATRIAL SEPTAL DEFECT [None]
  - DYSPNOEA EXERTIONAL [None]
  - POLYCYTHAEMIA [None]
  - PULMONARY HYPERTENSION [None]
  - RIGHT VENTRICULAR FAILURE [None]
